FAERS Safety Report 7387731-9 (Version None)
Quarter: 2011Q1

REPORT INFORMATION
  Report Type: 
  Country: None (occurrence: None)
  Receive Date: 20110331
  Receipt Date: 20110325
  Transmission Date: 20110831
  Serious: Yes (Death, Other)
  Sender: FDA-Public Use
  Company Number: GB-GENZYME-FLUD-1000971

PATIENT
  Age: 34 Year
  Sex: Female

DRUGS (8)
  1. FLUDARA [Suspect]
     Indication: CHLOROMA
     Dosage: UNK
     Route: 065
  2. CYTARABINE [Suspect]
     Indication: CHLOROMA
     Dosage: UNK
     Route: 065
  3. CYCLOPHOSPHAMIDE [Suspect]
     Indication: BONE MARROW CONDITIONING REGIMEN
     Dosage: UNK
     Route: 065
  4. METHOTREXATE [Concomitant]
     Indication: PROPHYLAXIS AGAINST GRAFT VERSUS HOST DISEASE
  5. CAMPATH [Suspect]
     Indication: BONE MARROW CONDITIONING REGIMEN
     Dosage: UNK
     Route: 065
  6. IDARUBICIN HCL [Suspect]
     Indication: CHLOROMA
     Dosage: UNK
     Route: 065
  7. CYCLOSPORINE [Concomitant]
     Indication: PROPHYLAXIS AGAINST GRAFT VERSUS HOST DISEASE
  8. GRANULOCYTE COLONY STIMULATING FACTOR [Suspect]
     Indication: CHLOROMA
     Dosage: UNK
     Route: 065

REACTIONS (5)
  - APLASIA [None]
  - CYTOMEGALOVIRUS CHORIORETINITIS [None]
  - TRANSPLANT FAILURE [None]
  - NEUTROPENIC SEPSIS [None]
  - PNEUMONIA FUNGAL [None]
